FAERS Safety Report 4336487-2 (Version None)
Quarter: 2004Q2

REPORT INFORMATION
  Report Type: 
  Country: None (occurrence: None)
  Receive Date: 20040407
  Receipt Date: 20040322
  Transmission Date: 20050107
  Serious: Yes (Hospitalization, Other)
  Sender: FDA-Public Use
  Company Number: USA040362668

PATIENT
  Age: 34 Year
  Sex: Female
  Weight: 125 kg

DRUGS (1)
  1. HUMULIN 70/30 [Suspect]
     Dosage: 50 U/2 DAY
     Dates: start: 20010101

REACTIONS (2)
  - CEREBROVASCULAR ACCIDENT [None]
  - PHARMACEUTICAL PRODUCT COMPLAINT [None]
